FAERS Safety Report 11367835 (Version 1)
Quarter: 2015Q3

REPORT INFORMATION
  Report Type: Spontaneous
  Country: US (occurrence: US)
  Receive Date: 20150811
  Receipt Date: 20150811
  Transmission Date: 20151125
  Serious: No
  Sender: FDA-Public Use
  Company Number: US-ELI_LILLY_AND_COMPANY-US201205008580

PATIENT
  Sex: Male
  Weight: 80.27 kg

DRUGS (1)
  1. AXIRON [Suspect]
     Active Substance: TESTOSTERONE
     Indication: BLOOD TESTOSTERONE DECREASED
     Dosage: 60 MG, QD
     Dates: start: 20120518

REACTIONS (2)
  - Sensory disturbance [Not Recovered/Not Resolved]
  - Joint swelling [Recovered/Resolved with Sequelae]

NARRATIVE: CASE EVENT DATE: 20120522
